FAERS Safety Report 5276804-2 (Version None)
Quarter: 2007Q1

REPORT INFORMATION
  Report Type: 
  Country: None (occurrence: None)
  Receive Date: 20070327
  Receipt Date: 20070315
  Transmission Date: 20070707
  Serious: Yes (Death)
  Sender: FDA-Public Use
  Company Number: US-JNJFOC-20061003399

PATIENT
  Sex: Male

DRUGS (14)
  1. DURAGESIC-100 [Suspect]
  2. DURAGESIC-100 [Suspect]
  3. DURAGESIC-100 [Suspect]
     Indication: PAIN
  4. CODEINE [Concomitant]
     Indication: DRUG USE FOR UNKNOWN INDICATION
  5. LANOXIN [Concomitant]
  6. LASIX [Concomitant]
  7. ALDACTONE [Concomitant]
  8. PREDNISONE [Concomitant]
  9. REMERON [Concomitant]
  10. TYLENOL W/ CODEINE [Concomitant]
  11. ASPIRIN [Concomitant]
  12. ASACOL [Concomitant]
  13. PROTONIX [Concomitant]
  14. BUSPAR [Concomitant]

REACTIONS (2)
  - NARCOTIC INTOXICATION [None]
  - OVERDOSE [None]
